FAERS Safety Report 14183314 (Version 3)
Quarter: 2017Q4

REPORT INFORMATION
  Report Type: Report from Study
  Country: None (occurrence: CZ)
  Receive Date: 20171113
  Receipt Date: 20171222
  Transmission Date: 20180321
  Serious: Yes (Life-Threatening, Hospitalization, Disabling, Other)
  Sender: FDA-Public Use
  Company Number: CZ-ABBVIE-17K-217-2150491-00

PATIENT
  Age: 61 Year
  Sex: Female
  Weight: 97 kg

DRUGS (16)
  1. METHOTREXATUM [Suspect]
     Active Substance: METHOTREXATE
     Indication: RHEUMATOID ARTHRITIS
     Route: 048
     Dates: start: 201708, end: 201710
  2. AGEN [Concomitant]
     Indication: PRODUCT USED FOR UNKNOWN INDICATION
  3. TREXAN [Concomitant]
     Active Substance: METHOTREXATE SODIUM
     Dosage: DISCONTINUED DUE TO METASTATIC PROCESS
     Dates: start: 20170728, end: 20171011
  4. HUMIRA [Suspect]
     Active Substance: ADALIMUMAB
     Indication: RHEUMATOID ARTHRITIS
     Route: 058
     Dates: start: 20170426, end: 20170927
  5. ACIDUM FOLICUM [Concomitant]
     Active Substance: FOLIC ACID
     Indication: PRODUCT USED FOR UNKNOWN INDICATION
  6. PERINDOPRIL [Concomitant]
     Active Substance: PERINDOPRIL
     Indication: PRODUCT USED FOR UNKNOWN INDICATION
  7. TREXAN [Concomitant]
     Active Substance: METHOTREXATE SODIUM
     Indication: RHEUMATOID ARTHRITIS
     Route: 048
     Dates: start: 2008, end: 2010
  8. HUMIRA [Suspect]
     Active Substance: ADALIMUMAB
     Route: 058
  9. OMEPRAZOL [Concomitant]
     Active Substance: OMEPRAZOLE
     Indication: PRODUCT USED FOR UNKNOWN INDICATION
  10. MILURIT [Concomitant]
     Active Substance: ALLOPURINOL
     Indication: PRODUCT USED FOR UNKNOWN INDICATION
  11. APO-METOPROLOL [Concomitant]
     Active Substance: METOPROLOL
     Indication: PRODUCT USED FOR UNKNOWN INDICATION
  12. BIOFENAC [Concomitant]
     Active Substance: ACECLOFENAC
     Indication: PRODUCT USED FOR UNKNOWN INDICATION
  13. SIMGAL [Concomitant]
     Active Substance: SIMVASTATIN
     Indication: PRODUCT USED FOR UNKNOWN INDICATION
  14. TREXAN [Concomitant]
     Active Substance: METHOTREXATE SODIUM
     Dates: start: 2013
  15. PREDNISON [Concomitant]
     Active Substance: PREDNISONE
     Indication: RHEUMATOID ARTHRITIS
     Dates: start: 2008
  16. VIGANTOL [Concomitant]
     Active Substance: CHOLECALCIFEROL
     Indication: PRODUCT USED FOR UNKNOWN INDICATION

REACTIONS (17)
  - Haemorrhoids [Unknown]
  - Arteriosclerosis [Unknown]
  - Atelectasis [Unknown]
  - Cardiomegaly [Unknown]
  - Weight increased [Unknown]
  - Adenocarcinoma [Not Recovered/Not Resolved]
  - Asthenia [Unknown]
  - Breast haematoma [Unknown]
  - Spinal osteoarthritis [Unknown]
  - Abdominal distension [Unknown]
  - Pleural effusion [Unknown]
  - Decreased appetite [Unknown]
  - Metastases to peritoneum [Not Recovered/Not Resolved]
  - Oedema [Unknown]
  - Calculus bladder [Unknown]
  - Hepatomegaly [Unknown]
  - Ascites [Unknown]

NARRATIVE: CASE EVENT DATE: 2017
